FAERS Safety Report 4524022-5 (Version None)
Quarter: 2004Q4

REPORT INFORMATION
  Report Type: 
  Country: None (occurrence: None)
  Receive Date: 20041209
  Receipt Date: 20040803
  Transmission Date: 20050328
  Serious: Yes (Death, Hospitalization)
  Sender: FDA-Public Use
  Company Number: F01200402308

PATIENT
  Age: 73 Year
  Sex: Male

DRUGS (3)
  1. (OXALIPLATIN)-SOLUTION-100 MG/M2 [Suspect]
     Indication: COLORECTAL CANCER METASTATIC
     Dosage: 200 MG Q2W, INTRAVENOUS NOS
     Route: 042
     Dates: start: 20040712, end: 20040712
  2. FLUOROURACIL [Suspect]
     Dosage: 3000 MG AS 46-HOUR CONTINUOUS, IV INFUSION, INTRAVENOUS NOS
     Route: 042
     Dates: start: 20040712, end: 20040714
  3. LEUCOVORIN CALCIUM [Suspect]
     Dosage: 400 MG Q2W, INTRAVENOUS NOS
     Route: 042
     Dates: start: 20040712, end: 20040713

REACTIONS (22)
  - ANAEMIA [None]
  - ANOREXIA [None]
  - ASTHENIA [None]
  - C-REACTIVE PROTEIN INCREASED [None]
  - COMA [None]
  - CREPITATIONS [None]
  - DISSEMINATED INTRAVASCULAR COAGULATION [None]
  - FLANK PAIN [None]
  - GENERAL PHYSICAL HEALTH DETERIORATION [None]
  - HEPATOMEGALY [None]
  - HYPERCALCAEMIA [None]
  - HYPERTHERMIA [None]
  - HYPOKALAEMIA [None]
  - HYPONATRAEMIA [None]
  - IMPAIRED SELF-CARE [None]
  - MALIGNANT NEOPLASM PROGRESSION [None]
  - MELAENA [None]
  - POLYDIPSIA [None]
  - POST PROCEDURAL DIARRHOEA [None]
  - RENAL FAILURE [None]
  - THROMBOCYTOPENIA [None]
  - WHITE BLOOD CELL COUNT INCREASED [None]
